FAERS Safety Report 4969389-9 (Version None)
Quarter: 2006Q2

REPORT INFORMATION
  Report Type: 
  Country: None (occurrence: None)
  Receive Date: 20060405
  Receipt Date: 20060327
  Transmission Date: 20061013
  Serious: Yes (Other)
  Sender: FDA-Public Use
  Company Number: 2006-DE-01603GD

PATIENT
  Sex: Female

DRUGS (1)
  1. PREDNISONE TAB [Suspect]
     Indication: HAEMANGIOMA CONGENITAL
     Dosage: 3 MG/KG

REACTIONS (10)
  - CAROTID ARTERY OCCLUSION [None]
  - CAROTID ARTERY STENOSIS [None]
  - CEREBRAL INFARCTION [None]
  - CONVULSION [None]
  - ENCEPHALOMALACIA [None]
  - ISCHAEMIC STROKE [None]
  - MOTOR DYSFUNCTION [None]
  - NYSTAGMUS [None]
  - SPEECH DISORDER DEVELOPMENTAL [None]
  - VERTEBRAL ARTERY OCCLUSION [None]
